FAERS Safety Report 9479599 (Version 2)
Quarter: 2013Q3

REPORT INFORMATION
  Report Type: Spontaneous
  Country: JP (occurrence: JP)
  Receive Date: 20130827
  Receipt Date: 20130827
  Transmission Date: 20140515
  Serious: Yes (Death, Other)
  Sender: FDA-Public Use
  Company Number: PHHY2010JP85049

PATIENT
  Age: 47 Year
  Sex: Male

DRUGS (5)
  1. AFINITOR [Suspect]
     Indication: RENAL CELL CARCINOMA
     Dosage: 10 MG, DAILY
     Route: 048
     Dates: start: 20100529, end: 20100814
  2. AFINITOR [Suspect]
     Dosage: 5 MG,DAILY
     Dates: start: 20100612, end: 20100819
  3. EURAX [Concomitant]
     Dosage: UNK
     Dates: start: 20100628, end: 20100707
  4. OXYCONTIN [Concomitant]
     Indication: CANCER PAIN
     Dosage: 10 MG, UNK
     Route: 048
     Dates: start: 20100706, end: 20100820
  5. MS CONTIN [Concomitant]
     Indication: CANCER PAIN
     Dosage: UNK
     Dates: start: 20100821

REACTIONS (12)
  - Cachexia [Fatal]
  - Anaemia [Recovering/Resolving]
  - Rash [Recovered/Resolved]
  - Platelet count decreased [Recovered/Resolved]
  - Stomatitis [Recovered/Resolved]
  - Renal impairment [Not Recovered/Not Resolved]
  - Pleural effusion [Unknown]
  - Pyrexia [Unknown]
  - Dyspnoea [Unknown]
  - Blood albumin decreased [Unknown]
  - Blood alkaline phosphatase increased [Unknown]
  - Gamma-glutamyltransferase increased [Unknown]
